FAERS Safety Report 17260843 (Version 1)
Quarter: 2020Q1

REPORT INFORMATION
  Report Type: Spontaneous
  Country: CH (occurrence: CH)
  Receive Date: 20200113
  Receipt Date: 20200113
  Transmission Date: 20200409
  Serious: No
  Sender: FDA-Public Use
  Company Number: CH-ALKEM LABORATORIES LIMITED-CH-ALKEM-2019-08682

PATIENT
  Sex: Male

DRUGS (4)
  1. ROSUVASTATIN. [Suspect]
     Active Substance: ROSUVASTATIN
     Indication: PRODUCT USED FOR UNKNOWN INDICATION
     Dosage: SINGLE DOSE OF 10 MILLIGRAM, ON DAY 1
     Route: 048
     Dates: start: 201711
  2. MACITENTAN [Suspect]
     Active Substance: MACITENTAN
     Dosage: 10 MILLIGRAM, OD, DAY 6 TO DAY 16
     Route: 048
     Dates: start: 201711
  3. ROSUVASTATIN. [Suspect]
     Active Substance: ROSUVASTATIN
     Dosage: SINGLE DOSE OF 10 MILLIGRAM, ON DAY 10
     Route: 048
     Dates: start: 201711
  4. MACITENTAN [Suspect]
     Active Substance: MACITENTAN
     Indication: PRODUCT USED FOR UNKNOWN INDICATION
     Dosage: SINGLE DOSE OF 30 MILLIGRAM (THREE 10 MG TABLETS), ON DAY 5
     Route: 048
     Dates: start: 201711

REACTIONS (1)
  - Headache [Unknown]
